FAERS Safety Report 5680287-8 (Version None)
Quarter: 2008Q1

REPORT INFORMATION
  Report Type: 
  Country: None (occurrence: None)
  Receive Date: 20080326
  Receipt Date: 20080326
  Transmission Date: 20080703
  Serious: Yes (Hospitalization)
  Sender: FDA-Public Use
  Company Number: ES-JNJFOC-20080303879

PATIENT
  Age: 80 Year
  Sex: Female
  Weight: 52 kg

DRUGS (3)
  1. INFLIXIMAB, RECOMBINANT [Suspect]
     Indication: POLYMYALGIA RHEUMATICA
  2. DECORTIN [Concomitant]
  3. CALCIUM+VITAMIN D [Concomitant]

REACTIONS (4)
  - ANAEMIA [None]
  - MESENTERIC ARTERY STENOSIS [None]
  - NO THERAPEUTIC RESPONSE [None]
  - URINARY TRACT INFECTION [None]
